FAERS Safety Report 12103121 (Version 1)
Quarter: 2016Q1

REPORT INFORMATION
  Report Type: Spontaneous
  Country: GB (occurrence: GB)
  Receive Date: 20160222
  Receipt Date: 20160222
  Transmission Date: 20160526
  Serious: Yes (Disabling)
  Sender: FDA-Public Use
  Company Number: GB-TEVA-635320ACC

PATIENT
  Age: 90 Year
  Sex: Male
  Weight: 97 kg

DRUGS (10)
  1. PERINDOPRIL ERBUMINE. [Concomitant]
     Active Substance: PERINDOPRIL ERBUMINE
     Dosage: 1 DOSAGE FORMS DAILY;
     Dates: start: 20150702
  2. PRAZOSIN [Concomitant]
     Active Substance: PRAZOSIN
     Dosage: 6 MILLIGRAM DAILY;
     Dates: start: 20150702
  3. PREDNISOLONE. [Concomitant]
     Active Substance: PREDNISOLONE
     Dosage: TOTAL DOSE 8MG (REDUCING AS DIRECTED).
     Dates: start: 20141224
  4. CLARITHROMYCIN. [Suspect]
     Active Substance: CLARITHROMYCIN
     Dates: start: 20160203
  5. FERROUS FUMARATE [Concomitant]
     Active Substance: FERROUS FUMARATE
     Dosage: 3 DOSAGE FORMS DAILY;
     Dates: start: 20151127
  6. CLEXANE [Concomitant]
     Active Substance: ENOXAPARIN SODIUM
     Dosage: 1 DOSAGE FORMS DAILY;
     Dates: start: 20151119
  7. FORTISIP [Concomitant]
     Active Substance: CARBOHYDRATES\FATTY ACIDS\MINERALS\PROTEIN\VITAMINS
     Dosage: USE AS DIRECTED.
     Dates: start: 20160112
  8. DOXYCYCLINE. [Concomitant]
     Active Substance: DOXYCYCLINE
     Dosage: TWO NOW THEN ONE DAILY.
     Dates: start: 20160112, end: 20160119
  9. FINASTERIDE. [Concomitant]
     Active Substance: FINASTERIDE
     Dosage: 1 DOSAGE FORMS DAILY;
     Dates: start: 20150722
  10. STERCULIA [Concomitant]
     Active Substance: KARAYA GUM
     Dosage: 2 DOSAGE FORMS DAILY; TAKE 2 TEASPOONS TWICE A DAY.
     Dates: start: 20140429

REACTIONS (1)
  - Urinary retention [Recovered/Resolved]

NARRATIVE: CASE EVENT DATE: 20160203
